FAERS Safety Report 25990753 (Version 1)
Quarter: 2025Q4

REPORT INFORMATION
  Report Type: Spontaneous
  Country: US (occurrence: None)
  Receive Date: 20251031
  Receipt Date: 20251031
  Transmission Date: 20260118
  Serious: Yes (Life-Threatening, Other)
  Sender: FDA-CTU
  Company Number: None

PATIENT
  Age: 23 Year
  Sex: Male
  Weight: 71.67 kg

DRUGS (1)
  1. ALFUZOSIN [Suspect]
     Active Substance: ALFUZOSIN
     Indication: Urinary retention
     Dosage: 10 MG DAILY ORAL ?
     Route: 048
     Dates: start: 20251030, end: 20251031

REACTIONS (11)
  - Physical product label issue [None]
  - Chest discomfort [None]
  - Confusional state [None]
  - Fall [None]
  - Blood potassium decreased [None]
  - Tremor [None]
  - Circulatory collapse [None]
  - Dysstasia [None]
  - Head injury [None]
  - Spinal column injury [None]
  - Near death experience [None]

NARRATIVE: CASE EVENT DATE: 20251030
